FAERS Safety Report 9774793 (Version 1)
Quarter: 2013Q4

REPORT INFORMATION
  Report Type: Spontaneous
  Country: US (occurrence: US)
  Receive Date: 20131220
  Receipt Date: 20131220
  Transmission Date: 20140711
  Serious: No
  Sender: FDA-Public Use
  Company Number: US-GALDERMA-US12415673

PATIENT
  Age: 54 Year
  Sex: Female
  Weight: 64 kg

DRUGS (7)
  1. METRONIDAZOLE [Suspect]
     Route: 061
  2. CETAPHIL [Suspect]
     Indication: SKIN BURNING SENSATION
     Route: 061
     Dates: start: 20121112, end: 20121118
  3. CETAPHIL [Suspect]
     Indication: ERYTHEMA
  4. DOVE SENSITIVE SKIN CLEANSING BAR [Concomitant]
     Indication: THERAPEUTIC SKIN CARE TOPICAL
     Route: 061
  5. ALOE VERA GEL 100% [Concomitant]
     Indication: THERAPEUTIC SKIN CARE TOPICAL
     Route: 061
  6. ALOE VERA GEL 100% [Concomitant]
     Indication: ACNE
  7. ALOE VERA GEL 100% [Concomitant]
     Indication: SEBORRHOEIC DERMATITIS

REACTIONS (3)
  - Acne [Recovering/Resolving]
  - Rash papular [Recovering/Resolving]
  - Drug ineffective [Not Recovered/Not Resolved]
